FAERS Safety Report 6289368-1 (Version None)
Quarter: 2009Q3

REPORT INFORMATION
  Report Type: 
  Country: None (occurrence: None)
  Receive Date: 20090728
  Receipt Date: 20090728
  Transmission Date: 20100115
  Serious: Yes (Other)
  Sender: FDA-Public Use
  Company Number: None

PATIENT
  Age: 74 Year
  Sex: Male
  Weight: 77.1115 kg

DRUGS (1)
  1. TESTIM [Suspect]
     Indication: ERECTILE DYSFUNCTION
     Dosage: 5 GRAM TUBE OF TOPICAL GEL DAILY
     Route: 061
     Dates: start: 20070918, end: 20070918

REACTIONS (7)
  - CHEST DISCOMFORT [None]
  - CHEST PAIN [None]
  - DIZZINESS [None]
  - FEELING ABNORMAL [None]
  - HEADACHE [None]
  - JOINT SWELLING [None]
  - NAUSEA [None]
